FAERS Safety Report 13961041 (Version 29)
Quarter: 2023Q2

REPORT INFORMATION
  Report Type: Spontaneous
  Country: BR (occurrence: BR)
  Receive Date: 20170912
  Receipt Date: 20230620
  Transmission Date: 20230721
  Serious: Yes (Other)
  Sender: FDA-Public Use
  Company Number: BR-GLAXOSMITHKLINE-BR2017GSK035127

PATIENT

DRUGS (12)
  1. BENLYSTA [Suspect]
     Active Substance: BELIMUMAB
     Indication: Systemic lupus erythematosus
     Dosage: 600 MG , 5 VIALS OF 120MG EACH
     Dates: start: 20170210
  2. BENLYSTA [Suspect]
     Active Substance: BELIMUMAB
     Dosage: 760 MG
  3. BENLYSTA [Suspect]
     Active Substance: BELIMUMAB
     Dosage: 120 MG
  4. BENLYSTA [Suspect]
     Active Substance: BELIMUMAB
     Dosage: 125 MG
  5. BENLYSTA [Suspect]
     Active Substance: BELIMUMAB
     Dosage: UNK
  6. BENLYSTA [Suspect]
     Active Substance: BELIMUMAB
     Dosage: 120 MG
     Dates: start: 20170210
  7. AZATHIOPRINE [Concomitant]
     Active Substance: AZATHIOPRINE
     Indication: Product used for unknown indication
     Dosage: UNK
  8. IBUPROFEN [Concomitant]
     Active Substance: IBUPROFEN
     Indication: Product used for unknown indication
     Dosage: UNK
  9. PREDNISONE [Concomitant]
     Active Substance: PREDNISONE
     Indication: Product used for unknown indication
     Dosage: 5 MG
  10. HYDROXYCHLOROQUINE SULFATE [Concomitant]
     Active Substance: HYDROXYCHLOROQUINE SULFATE
     Indication: Product used for unknown indication
     Dosage: UNK
  11. DIMETHICONE [Concomitant]
     Active Substance: DIMETHICONE
     Indication: Product used for unknown indication
     Dosage: UNK
  12. DIMENHYDRINATE\PYRIDOXINE HYDROCHLORIDE [Concomitant]
     Active Substance: DIMENHYDRINATE\PYRIDOXINE HYDROCHLORIDE
     Indication: Product used for unknown indication
     Dosage: UNK

REACTIONS (36)
  - Rheumatic fever [Unknown]
  - Systemic lupus erythematosus [Unknown]
  - Hypersensitivity [Not Recovered/Not Resolved]
  - Condition aggravated [Unknown]
  - Pruritus [Unknown]
  - Paraesthesia [Unknown]
  - Feeling hot [Unknown]
  - Myalgia [Unknown]
  - Blood cholesterol increased [Unknown]
  - Skin haemorrhage [Unknown]
  - Agitation [Unknown]
  - Burning sensation [Unknown]
  - Dermatitis allergic [Unknown]
  - Insomnia [Unknown]
  - Rheumatic disorder [Unknown]
  - Weight fluctuation [Unknown]
  - Headache [Not Recovered/Not Resolved]
  - COVID-19 [Not Recovered/Not Resolved]
  - Blood triglycerides abnormal [Unknown]
  - Asthenia [Not Recovered/Not Resolved]
  - Feeling cold [Unknown]
  - Pain [Not Recovered/Not Resolved]
  - Inflammation [Unknown]
  - Peripheral swelling [Unknown]
  - Bursitis [Unknown]
  - Pain in extremity [Unknown]
  - Arthralgia [Unknown]
  - Arthritis [Unknown]
  - Pyrexia [Not Recovered/Not Resolved]
  - Influenza [Unknown]
  - Therapy interrupted [Unknown]
  - Therapeutic product effect decreased [Unknown]
  - Product availability issue [Unknown]
  - Product dose omission issue [Unknown]
  - Inappropriate schedule of product administration [Unknown]
  - Circumstance or information capable of leading to medication error [Unknown]

NARRATIVE: CASE EVENT DATE: 20170511
